FAERS Safety Report 9481690 (Version 1)
Quarter: 2013Q3

REPORT INFORMATION
  Report Type: Spontaneous
  Country: CA (occurrence: CA)
  Receive Date: 20130828
  Receipt Date: 20130828
  Transmission Date: 20140515
  Serious: Yes (Hospitalization)
  Sender: FDA-Public Use
  Company Number: CA-AMGEN-KDL206792

PATIENT
  Age: 58 Year
  Sex: Female

DRUGS (2)
  1. ENBREL [Suspect]
     Indication: RHEUMATOID ARTHRITIS
     Dosage: 25 MG, 2 TIMES/WK
     Route: 058
     Dates: start: 20060618, end: 20061213
  2. METHOTREXATE [Concomitant]
     Dosage: UNK UNK, UNK
     Dates: end: 20061213

REACTIONS (2)
  - Hepatic function abnormal [Unknown]
  - Fluid retention [Unknown]
